FAERS Safety Report 5346681-X (Version None)
Quarter: 2007Q2

REPORT INFORMATION
  Report Type: 
  Country: None (occurrence: None)
  Receive Date: 20070604
  Receipt Date: 20070522
  Transmission Date: 20071010
  Serious: Yes (Death)
  Sender: FDA-Public Use
  Company Number: GXKR2007AR04554

PATIENT
  Age: 83 Year
  Sex: Male
  Weight: 90 kg

DRUGS (1)
  1. AMLODIPINE BESYLATE+BENAZEPRIL HYDROCHLORIDE (NGX)(AMLODIPINE, BENAZEP [Suspect]
     Indication: HYPERTENSION
     Dosage: 1 DF DAILY, ORAL
     Route: 048
     Dates: start: 20060710, end: 20070428

REACTIONS (1)
  - CEREBROVASCULAR ACCIDENT [None]
